FAERS Safety Report 18493848 (Version 1)
Quarter: 2020Q4

REPORT INFORMATION
  Report Type: Report from Study
  Country: US (occurrence: US)
  Receive Date: 20201111
  Receipt Date: 20201111
  Transmission Date: 20210114
  Serious: Yes (Hospitalization)
  Sender: FDA-Public Use
  Company Number: US-TAKEDA-US201901611

PATIENT
  Age: 59 Year
  Sex: Female
  Weight: 61 kg

DRUGS (19)
  1. TEDUGLUTIDE [Suspect]
     Active Substance: TEDUGLUTIDE
     Indication: SHORT-BOWEL SYNDROME
     Dosage: 5 MILLIGRAM (0.08 MG KG), 7 DOSES PER WEEK
     Route: 065
     Dates: start: 20171013, end: 20171205
  2. ONDANSETRON [Concomitant]
     Active Substance: ONDANSETRON
     Indication: NAUSEA
     Dosage: 500 MILLILITER, SINGLE
     Route: 042
     Dates: start: 20191118, end: 20191118
  3. HYDROMORPHONE [Concomitant]
     Active Substance: HYDROMORPHONE
     Indication: ABDOMINAL PAIN
     Dosage: 1 MILLIGRAM, SINGLE
     Route: 042
     Dates: start: 20191118, end: 20191118
  4. TEDUGLUTIDE [Suspect]
     Active Substance: TEDUGLUTIDE
     Dosage: 5 MILLIGRAM (0.08 MG/KG DAILY DOSE), 4 DOSES PER WEEK
     Route: 065
     Dates: start: 20180711, end: 20180911
  5. LIDOCAINE. [Concomitant]
     Active Substance: LIDOCAINE
     Indication: SHORT-BOWEL SYNDROME
  6. ERTAPENEM. [Concomitant]
     Active Substance: ERTAPENEM SODIUM
     Indication: INFECTION
  7. VANCOMYCIN [Concomitant]
     Active Substance: VANCOMYCIN
     Indication: SEPSIS
     Dosage: 1250 MILLIGRAM, QD
     Route: 042
     Dates: start: 20200922, end: 20201016
  8. TEDUGLUTIDE [Suspect]
     Active Substance: TEDUGLUTIDE
     Indication: SHORT-BOWEL SYNDROME
     Dosage: 5 MILLIGRAM (0.08 MG KG), 7 DOSES PER WEEK
     Route: 065
     Dates: start: 20171013, end: 20171205
  9. TEDUGLUTIDE [Suspect]
     Active Substance: TEDUGLUTIDE
     Dosage: 5 MILLIGRAM (0.08 MG/KG DAILY DOSE), 4 DOSES PER WEEK
     Route: 065
     Dates: start: 20180711, end: 20180911
  10. PIPERACILLIN AND TAZOBACTAM [Concomitant]
     Active Substance: PIPERACILLIN SODIUM\TAZOBACTAM SODIUM
     Indication: INFECTION
     Dosage: 3.38 GRAM, TID
     Route: 042
     Dates: start: 20181020, end: 20201022
  11. TEDUGLUTIDE [Suspect]
     Active Substance: TEDUGLUTIDE
     Indication: SHORT-BOWEL SYNDROME
     Dosage: 5 MILLIGRAM (0.08 MG KG), 7 DOSES PER WEEK
     Route: 065
     Dates: start: 20171013, end: 20171205
  12. TEDUGLUTIDE [Suspect]
     Active Substance: TEDUGLUTIDE
     Dosage: 5 MILLIGRAM (0.08 MG/KG DAILY DOSE), 4 DOSES PER WEEK
     Route: 065
     Dates: start: 20180711, end: 20180911
  13. TEDUGLUTIDE [Suspect]
     Active Substance: TEDUGLUTIDE
     Dosage: 5 MILLIGRAM (0.08 MG/KG DAILY DOSE), 4 DOSES PER WEEK
     Route: 065
     Dates: start: 20180711, end: 20180911
  14. DAPTOMYCIN. [Concomitant]
     Active Substance: DAPTOMYCIN
     Indication: INFECTION
     Dosage: 355 MILLIGRAM, QD
     Route: 042
     Dates: start: 20181020, end: 20181022
  15. MELOXICAM. [Concomitant]
     Active Substance: MELOXICAM
     Indication: SHORT-BOWEL SYNDROME
  16. CEPHALEXIN [CEFALEXIN] [Concomitant]
     Active Substance: CEPHALEXIN
     Indication: CELLULITIS
     Dosage: 500 MILLIGRAM, QID
     Route: 048
     Dates: start: 20191106, end: 20191113
  17. TEDUGLUTIDE [Suspect]
     Active Substance: TEDUGLUTIDE
     Indication: SHORT-BOWEL SYNDROME
     Dosage: 5 MILLIGRAM (0.08 MG KG), 7 DOSES PER WEEK
     Route: 065
     Dates: start: 20171013, end: 20171205
  18. BENADRYL [Concomitant]
     Active Substance: DIPHENHYDRAMINE HYDROCHLORIDE
     Indication: ABDOMINAL PAIN
     Dosage: 25 MILLIGRAM
     Route: 042
     Dates: start: 20191118, end: 20191118
  19. ZOSYN [Concomitant]
     Active Substance: PIPERACILLIN SODIUM\TAZOBACTAM SODIUM
     Indication: SEPSIS
     Dosage: 3 GRAM, QID
     Route: 042
     Dates: start: 20200922, end: 20201016

REACTIONS (3)
  - Cellulitis [Recovered/Resolved]
  - Osteomyelitis [Recovered/Resolved]
  - Skin abrasion [Recovered/Resolved]

NARRATIVE: CASE EVENT DATE: 20181107
